FAERS Safety Report 19476748 (Version 1)
Quarter: 2021Q2

REPORT INFORMATION
  Report Type: Other
  Country: US (occurrence: US)
  Receive Date: 20210630
  Receipt Date: 20210630
  Transmission Date: 20210717
  Serious: Yes (Other)
  Sender: FDA-Public Use
  Company Number: US-ROCHE-2767739

PATIENT
  Age: 73 Year
  Sex: Female

DRUGS (49)
  1. ASPIRIN 81 [Concomitant]
     Active Substance: ASPIRIN
  2. VITAMIN D3 [Concomitant]
     Active Substance: CHOLECALCIFEROL
     Dosage: 1000 UNIT
     Route: 048
  3. ZELBORAF [Suspect]
     Active Substance: VEMURAFENIB
     Indication: OVARIAN GERM CELL CANCER
     Dosage: TAKE 4 TABLET(S) BY MOUTH EVERY 12 HOURS WITH A GLASS OF WATER, SWALLOW WHOLE
     Route: 048
  4. ZELBORAF [Suspect]
     Active Substance: VEMURAFENIB
     Route: 048
     Dates: start: 20170501
  5. COTELLIC [Suspect]
     Active Substance: COBIMETINIB
     Dosage: TAKE 2 TABLET(S) BY MOUTH EVERY DAY ON DAYS 1?21 O
     Route: 048
  6. ALLOPURINOL. [Concomitant]
     Active Substance: ALLOPURINOL
  7. HYOSCYAMINE SULFATE. [Concomitant]
     Active Substance: HYOSCYAMINE SULFATE
     Route: 048
  8. DOXEPIN HCL [Concomitant]
     Active Substance: DOXEPIN HYDROCHLORIDE
  9. L?GLUTAMINE [Concomitant]
  10. L?TYROSINE [Concomitant]
     Active Substance: TYROSINE
     Route: 048
  11. ATIVAN [Concomitant]
     Active Substance: LORAZEPAM
     Indication: INSOMNIA
     Dosage: 2 MG/ML
     Route: 048
  12. ZUPLENZ [Concomitant]
     Active Substance: ONDANSETRON
     Route: 048
  13. COTELLIC [Suspect]
     Active Substance: COBIMETINIB
     Dosage: TAKE 2 TABLET(S) BY MOUTH EVERY DAY ON DAYS 1?21 O
     Route: 048
     Dates: start: 201705
  14. ONDANSETRON [Concomitant]
     Active Substance: ONDANSETRON
  15. VITAMIN B COMPLEX [Concomitant]
     Active Substance: CYANOCOBALAMIN\DEXPANTHENOL\NIACINAMIDE\PYRIDOXINE HYDROCHLORIDE\RIBOFLAVIN 5^-PHOSPHATE SODIUM\THIAMINE HYDROCHLORIDE\VITAMIN B COMPLEX
  16. PEPTO?BISMOL [Concomitant]
     Active Substance: BISMUTH SUBSALICYLATE
     Route: 048
  17. CYANOCOBALAMINE [Concomitant]
     Active Substance: CYANOCOBALAMIN
     Route: 048
  18. LORATADINE. [Concomitant]
     Active Substance: LORATADINE
  19. ZELBORAF [Suspect]
     Active Substance: VEMURAFENIB
     Dosage: 4 TABLETS?TAKE WITH WATERAND SWALLOW THE TABLET WHOLE
     Route: 048
  20. ASPIRIN. [Concomitant]
     Active Substance: ASPIRIN
     Route: 048
  21. GAS X EXTRA STRENGTH [Concomitant]
     Route: 048
  22. ZELBORAF [Suspect]
     Active Substance: VEMURAFENIB
     Indication: OVARIAN CANCER
     Dosage: 6 TABLET BY MOUTH EVERY 12 HOURS
     Route: 048
     Dates: start: 201705
  23. AMERICAN GINSENG ROOT [Concomitant]
     Route: 048
  24. CHOLECALCIFEROL [Concomitant]
     Active Substance: CHOLECALCIFEROL
     Dosage: 1000 UNIT
     Route: 048
  25. KLOR?CON [Concomitant]
     Active Substance: POTASSIUM CHLORIDE
     Route: 048
  26. COMPAZINE [Concomitant]
     Active Substance: PROCHLORPERAZINE MALEATE
     Dosage: AS NEEDED
     Route: 048
  27. SIMVASTATIN. [Concomitant]
     Active Substance: SIMVASTATIN
  28. GLUTAMINE [Concomitant]
     Active Substance: GLUTAMINE
  29. PRILOSEC [Concomitant]
     Active Substance: OMEPRAZOLE MAGNESIUM
     Dosage: EVERY MORNING BEFORE BREAKFAST
     Route: 048
  30. COMPRO [Concomitant]
     Active Substance: PROCHLORPERAZINE
     Indication: NAUSEA
     Dosage: AS NEEDED
     Route: 054
  31. ZELBORAF [Suspect]
     Active Substance: VEMURAFENIB
     Route: 048
  32. COTELLIC [Suspect]
     Active Substance: COBIMETINIB
     Indication: OVARIAN CANCER
     Dosage: 28 DAYS CYCLE
     Route: 048
     Dates: start: 201705
  33. COTELLIC [Suspect]
     Active Substance: COBIMETINIB
     Dosage: TAKE 3 TABLET(S) BY MOUTH EVERY DAY ON DAYS 1?21 28 DAY CYCLE
     Route: 048
  34. FOLIC ACID. [Concomitant]
     Active Substance: FOLIC ACID
     Route: 048
  35. L?LYSINE [Concomitant]
     Active Substance: LYSINE
     Route: 048
  36. L?LYSINE [Concomitant]
     Active Substance: LYSINE
     Route: 048
  37. ONDANSETRON HCL [Concomitant]
     Active Substance: ONDANSETRON HYDROCHLORIDE
  38. TYLENOL EXTRA STRENGTH [Concomitant]
     Active Substance: ACETAMINOPHEN
     Indication: PYREXIA
  39. DOXEPIN [Concomitant]
     Active Substance: DOXEPIN
     Route: 048
  40. ZOFRAN [Concomitant]
     Active Substance: ONDANSETRON HYDROCHLORIDE
     Dosage: AS NEEDED
     Route: 048
  41. ZOCOR [Concomitant]
     Active Substance: SIMVASTATIN
     Dosage: NIGHTLY
     Route: 048
  42. VIVELLE?DOT [Concomitant]
     Active Substance: ESTRADIOL
     Dosage: 0.0375MG/24HR
  43. XANAX [Concomitant]
     Active Substance: ALPRAZOLAM
  44. COTELLIC [Suspect]
     Active Substance: COBIMETINIB
     Indication: OVARIAN GERM CELL CANCER
     Dosage: TAKE 3 TABLET(S) BY MOUTH DAILY FOR 3 WEEK(S) ON A
     Route: 048
  45. ACETAMINOPHEN. [Concomitant]
     Active Substance: ACETAMINOPHEN
     Dosage: TAKE BY MOUTH AS NEEDED.
  46. B COMPLEX WITH VITAMIN C [Concomitant]
  47. LOMOTIL [Concomitant]
     Active Substance: ATROPINE SULFATE\DIPHENOXYLATE HYDROCHLORIDE
     Dosage: 2.5?0.25 MG?UNTIL CONTROL ACHIEVED
     Route: 048
  48. ATIVAN [Concomitant]
     Active Substance: LORAZEPAM
     Indication: ANXIETY
     Route: 048
  49. PYRIDOXINE HCL [Concomitant]
     Active Substance: PYRIDOXINE HYDROCHLORIDE
     Route: 048

REACTIONS (9)
  - Malignant neoplasm progression [Not Recovered/Not Resolved]
  - Renal failure [Unknown]
  - Plantar fasciitis [Recovering/Resolving]
  - Blood alkaline phosphatase increased [Unknown]
  - Diarrhoea [Recovered/Resolved]
  - Blood creatine phosphokinase increased [Unknown]
  - Off label use [Unknown]
  - Rash [Recovered/Resolved]
  - Diarrhoea [Unknown]

NARRATIVE: CASE EVENT DATE: 201705
